FAERS Safety Report 9203215 (Version 1)
Quarter: 2013Q2

REPORT INFORMATION
  Report Type: Spontaneous
  Country: FR (occurrence: FR)
  Receive Date: 20130402
  Receipt Date: 20130402
  Transmission Date: 20140414
  Serious: Yes (Other)
  Sender: FDA-Public Use
  Company Number: FR-JNJFOC-20130317220

PATIENT
  Sex: Male

DRUGS (2)
  1. XARELTO [Suspect]
     Indication: VENOUS THROMBOSIS
     Route: 048
  2. BCG VACCINE [Suspect]
     Indication: URINARY BLADDER POLYP
     Route: 043

REACTIONS (2)
  - Thrombocytopenia [Unknown]
  - Epistaxis [Recovered/Resolved]
